FAERS Safety Report 12340128 (Version 2)
Quarter: 2016Q2

REPORT INFORMATION
  Report Type: Spontaneous
  Country: DE (occurrence: DE)
  Receive Date: 20160506
  Receipt Date: 20160513
  Transmission Date: 20160815
  Serious: Yes (Other)
  Sender: FDA-Public Use
  Company Number: DE-BAUSCH-BL-2016-010338

PATIENT
  Sex: Male

DRUGS (2)
  1. FLOXAL AUGENTROPFEN [Suspect]
     Active Substance: OFLOXACIN
     Indication: POSTOPERATIVE CARE
     Route: 001
     Dates: start: 2016
  2. FLOXAL AUGENTROPFEN [Suspect]
     Active Substance: OFLOXACIN
     Indication: EAR DISORDER

REACTIONS (2)
  - Deafness unilateral [Unknown]
  - Incorrect route of drug administration [Unknown]
